FAERS Safety Report 18267808 (Version 1)
Quarter: 2020Q3

REPORT INFORMATION
  Report Type: Spontaneous
  Country: US (occurrence: US)
  Receive Date: 20200915
  Receipt Date: 20200915
  Transmission Date: 20201103
  Serious: No
  Sender: FDA-Public Use
  Company Number: US-MYLANLABS-2020M1077286

PATIENT
  Sex: Female
  Weight: 79 kg

DRUGS (2)
  1. ESTRADIOL VAGINAL CREAM USP [Suspect]
     Active Substance: ESTRADIOL
     Dosage: UNK UNK, 3XW
     Route: 067
  2. ESTRADIOL VAGINAL CREAM USP [Suspect]
     Active Substance: ESTRADIOL
     Indication: PRODUCT USED FOR UNKNOWN INDICATION
     Dosage: 1 GRAM, 3XW
     Route: 067

REACTIONS (3)
  - Product quality issue [Not Recovered/Not Resolved]
  - Incorrect dosage administered [Unknown]
  - Inappropriate schedule of product administration [Not Recovered/Not Resolved]
